FAERS Safety Report 10767111 (Version 2)
Quarter: 2015Q1

REPORT INFORMATION
  Report Type: Spontaneous
  Country: IT (occurrence: IT)
  Receive Date: 20150205
  Receipt Date: 20150213
  Transmission Date: 20150721
  Serious: Yes (Death)
  Sender: FDA-Public Use
  Company Number: IT-EISAI MEDICAL RESEARCH-EC-2015-003637

PATIENT
  Age: 71 Year
  Sex: Female

DRUGS (10)
  1. HALAVEN [Suspect]
     Active Substance: ERIBULIN MESYLATE
     Indication: METASTASES TO CHEST WALL
  2. DELTACORTENE [Concomitant]
     Active Substance: PREDNISONE
     Indication: FATIGUE
     Dosage: 25 MG 1 TABLET AFTER BREAKFAST IN THE EVENT OF EXCESSIVE TIREDNESS
     Route: 048
  3. ONDANSETRON [Concomitant]
     Active Substance: ONDANSETRON
     Indication: NAUSEA
     Dosage: 8 MG 1 TABLET TWICE DAILY BEFORE MEALS IN THE EVENT OF SEVERE NAUSEA
     Route: 048
  4. SOLDESAM [Concomitant]
     Active Substance: DEXAMETHASONE
     Indication: NAUSEA
     Dosage: 4 MG IN THE EVENT OF SEVERE NAUSEA AND VOMITING
     Route: 030
  5. SOLDESAM [Concomitant]
     Active Substance: DEXAMETHASONE
     Indication: VOMITING
  6. HALAVEN [Suspect]
     Active Substance: ERIBULIN MESYLATE
     Indication: METASTASES TO LYMPH NODES
  7. PLASIL [Concomitant]
     Active Substance: METOCLOPRAMIDE HYDROCHLORIDE
     Indication: NAUSEA
     Dosage: 1 TABLET BEFORE MEALS IN THE EVENT OF NAUSEA
     Route: 048
  8. HALAVEN [Suspect]
     Active Substance: ERIBULIN MESYLATE
     Indication: BREAST CANCER STAGE IV
     Route: 041
     Dates: start: 20141211, end: 20141218
  9. ATENOLOL. [Concomitant]
     Active Substance: ATENOLOL
     Indication: SINUS TACHYCARDIA
     Dosage: 50 MG EVERY MORNING (8 AM)
     Route: 048
     Dates: end: 20141222
  10. BROMAZEPAM [Concomitant]
     Active Substance: BROMAZEPAM
     Indication: ANXIETY
     Dosage: 10 DROPS IN THE EVENT OF ANXIETY
     Route: 048

REACTIONS (5)
  - Respiratory failure [Fatal]
  - Hyponatraemia [Unknown]
  - Neutropenia [Unknown]
  - Nausea [Recovered/Resolved]
  - Atrial fibrillation [Fatal]

NARRATIVE: CASE EVENT DATE: 20141211
